FAERS Safety Report 15585673 (Version 2)
Quarter: 2018Q4

REPORT INFORMATION
  Report Type: Spontaneous
  Country: US (occurrence: US)
  Receive Date: 20181105
  Receipt Date: 20181107
  Transmission Date: 20190205
  Serious: No
  Sender: FDA-Public Use
  Company Number: US-PFIZER INC-2016438390

PATIENT
  Age: 58 Year
  Sex: Female

DRUGS (14)
  1. EFFEXOR [Concomitant]
     Active Substance: VENLAFAXINE HYDROCHLORIDE
     Dosage: 150 MG, 1X/DAY, (TAKE 1 CAPSUL WITH FOOD)
     Route: 048
  2. VENLAFAXINE HYDROCHLORIDE. [Concomitant]
     Active Substance: VENLAFAXINE HYDROCHLORIDE
     Dosage: 150 MG, 1X/DAY(WITH FOOD)
     Route: 048
  3. ALBUTEROL SULFATE. [Concomitant]
     Active Substance: ALBUTEROL SULFATE
     Dosage: UNK UNK, AS NEEDED, (2 PUFFS AS NEEDED INHALATION EVERY 4 HRS)
  4. LYRICA [Suspect]
     Active Substance: PREGABALIN
     Indication: MULTIPLE SCLEROSIS
     Dosage: 150 MG, 2X/DAY
     Route: 048
  5. CLONAZEPAM. [Concomitant]
     Active Substance: CLONAZEPAM
     Dosage: 1 MG, 2X/DAY
     Route: 048
  6. GABAPENTIN. [Concomitant]
     Active Substance: GABAPENTIN
     Dosage: 3200 MG, DAILY (400MG EIGHT TIMES DAILY)
     Route: 048
  7. BACLOFEN. [Concomitant]
     Active Substance: BACLOFEN
     Dosage: 20 MG, 4X/DAY
     Route: 048
  8. VITAMIN B12 [Concomitant]
     Active Substance: CYANOCOBALAMIN
     Dosage: UNK UNK, 1X/DAY (1000, 1 TABLET)
     Route: 048
  9. CIPROFLOXACIN. [Concomitant]
     Active Substance: CIPROFLOXACIN
     Dosage: 500 MG, 2X/DAY
     Route: 048
  10. LYRICA [Suspect]
     Active Substance: PREGABALIN
     Dosage: 300 MG, 2X/DAY (TAKE 2 CAPSULES (300 MG TOTAL) BY MOUTH 2 TIMES DAILY)
     Route: 048
  11. DOXYCYCLINE MONOHYDRATE [Concomitant]
     Active Substance: DOXYCYCLINE
     Dosage: 100 MG, 2X/DAY
     Route: 048
  12. OXYBUTYNIN CHLORIDE. [Concomitant]
     Active Substance: OXYBUTYNIN CHLORIDE
     Dosage: 5 MG, 2X/DAY
     Route: 048
  13. VITAMIN D [Concomitant]
     Active Substance: CHOLECALCIFEROL
     Dosage: UNK, 1X/DAY, (1X/DAY (5000))
  14. ALENDRONATE SODIUM. [Concomitant]
     Active Substance: ALENDRONATE SODIUM
     Dosage: 70 MG, WEEKLY, (1 TABLET ORALLY ONCE A WEEK)
     Route: 048

REACTIONS (2)
  - Drug ineffective for unapproved indication [Unknown]
  - Pain in extremity [Unknown]
